FAERS Safety Report 5822710-1 (Version None)
Quarter: 2008Q3

REPORT INFORMATION
  Report Type: 
  Country: None (occurrence: None)
  Receive Date: 20080725
  Receipt Date: 20071114
  Transmission Date: 20090109
  Serious: No
  Sender: FDA-Public Use
  Company Number: US-AMGEN-KDL253190

PATIENT
  Sex: Male
  Weight: 79.5 kg

DRUGS (7)
  1. PROCRIT [Suspect]
     Indication: ANAEMIA OF MALIGNANT DISEASE
     Dates: start: 20071101
  2. AMLODIPINE [Concomitant]
  3. ISOSORBIDE DINITRATE [Concomitant]
  4. AMARYL [Concomitant]
  5. ASPIRIN [Concomitant]
  6. ALPRAZOLAM [Concomitant]
     Route: 048
  7. HYDROCODONE BITARTRATE [Concomitant]

REACTIONS (6)
  - AGITATION [None]
  - CHILLS [None]
  - HYPERTENSION [None]
  - INSOMNIA [None]
  - NERVOUSNESS [None]
  - TREMOR [None]
